FAERS Safety Report 5638436-3 (Version None)
Quarter: 2008Q1

REPORT INFORMATION
  Report Type: 
  Country: None (occurrence: None)
  Receive Date: 20080131
  Receipt Date: 20071105
  Transmission Date: 20080703
  Serious: No
  Sender: FDA-Public Use
  Company Number: 163-21880-07101644

PATIENT
  Age: 69 Year
  Sex: Male

DRUGS (9)
  1. REVLIMID [Suspect]
     Indication: MULTIPLE MYELOMA
     Dosage: 25 MG, 1 IN 1 D, ORAL
     Route: 048
     Dates: start: 20071023, end: 20071001
  2. DEXAMETHASONE TAB [Concomitant]
  3. LISINOPRIL [Concomitant]
  4. NEXIUM [Concomitant]
  5. MULTIVITAMIN [Concomitant]
  6. OMEGA 3 (FISH OIL) [Concomitant]
  7. LOFIBRA (FENOFIBRATE) [Concomitant]
  8. LIPITOR [Concomitant]
  9. NIASPAN [Concomitant]

REACTIONS (6)
  - DECREASED APPETITE [None]
  - HYPERSENSITIVITY [None]
  - RASH [None]
  - SWELLING [None]
  - SWELLING FACE [None]
  - WEIGHT INCREASED [None]
